FAERS Safety Report 7240099-0 (Version None)
Quarter: 2011Q1

REPORT INFORMATION
  Report Type: 
  Country: None (occurrence: None)
  Receive Date: 20110112
  Receipt Date: 20101227
  Transmission Date: 20110831
  Serious: Yes (Other)
  Sender: FDA-Public Use
  Company Number: RB-18051-2011

PATIENT
  Sex: Male

DRUGS (1)
  1. DELSYM (RECKITT BENCKISER) [Suspect]
     Dosage: (ORAL)
     Route: 048

REACTIONS (2)
  - INCORRECT DOSE ADMINISTERED [None]
  - EUPHORIC MOOD [None]
